FAERS Safety Report 7909767-9 (Version None)
Quarter: 2011Q4

REPORT INFORMATION
  Report Type: 
  Country: None (occurrence: None)
  Receive Date: 20111111
  Receipt Date: 20111108
  Transmission Date: 20120403
  Serious: Yes (Hospitalization, Disabling, Other)
  Sender: FDA-Public Use
  Company Number: US-PFIZER INC-2011117161

PATIENT
  Sex: Male

DRUGS (4)
  1. CHANTIX [Suspect]
     Indication: SMOKING CESSATION THERAPY
     Dosage: UNK, STARTER PACK
     Dates: start: 20070401, end: 20070612
  2. CHANTIX [Suspect]
     Dosage: STARTER PACK AND CONTINUING PACK
     Dates: start: 20080529, end: 20080604
  3. CHANTIX [Suspect]
     Dosage: UNK
     Dates: start: 20071001, end: 20071101
  4. CEPHALEXIN [Concomitant]
     Indication: INFECTION
     Dosage: UNK
     Dates: start: 20030101, end: 20080101

REACTIONS (9)
  - HEAD INJURY [None]
  - ANXIETY [None]
  - LUMBAR VERTEBRAL FRACTURE [None]
  - LOSS OF CONSCIOUSNESS [None]
  - ROAD TRAFFIC ACCIDENT [None]
  - RESTLESS LEGS SYNDROME [None]
  - DEPRESSION [None]
  - LIMB INJURY [None]
  - CERVICAL VERTEBRAL FRACTURE [None]
